FAERS Safety Report 19510304 (Version 1)
Quarter: 2021Q3

REPORT INFORMATION
  Report Type: Report from Study
  Country: FR (occurrence: FR)
  Receive Date: 20210708
  Receipt Date: 20210708
  Transmission Date: 20211014
  Serious: Yes (Other)
  Sender: FDA-Public Use
  Company Number: FR-US-PROVELL PHARMACEUTICALS LLC-9248729

PATIENT
  Age: 40 Year
  Sex: Male

DRUGS (1)
  1. LEVOTHYROX 150 [Suspect]
     Active Substance: LEVOTHYROXINE
     Indication: POST PROCEDURAL HYPOTHYROIDISM

REACTIONS (4)
  - Penis disorder [Not Recovered/Not Resolved]
  - Penile pain [Not Recovered/Not Resolved]
  - Erectile dysfunction [Not Recovered/Not Resolved]
  - Penile burning sensation [Not Recovered/Not Resolved]
